FAERS Safety Report 7526852-4 (Version None)
Quarter: 2011Q2

REPORT INFORMATION
  Report Type: 
  Country: None (occurrence: None)
  Receive Date: 20110606
  Receipt Date: 20080721
  Transmission Date: 20111010
  Serious: Yes (Death, Other)
  Sender: FDA-Public Use
  Company Number: US-BAYER-200826932NA

PATIENT
  Sex: Male
  Weight: 71 kg

DRUGS (23)
  1. MAGNEVIST [Suspect]
     Dosage: 15 ML, UNK
     Dates: start: 20030721, end: 20030721
  2. PLAVIX [Concomitant]
  3. EPOGEN [Concomitant]
  4. AMIODARONE HCL [Concomitant]
  5. CLONIDINE [Concomitant]
  6. HYTRIN [Concomitant]
  7. ZOLOFT [Concomitant]
  8. VENOFER [Concomitant]
  9. MULTIHANCE [Suspect]
     Indication: NUCLEAR MAGNETIC RESONANCE IMAGING
  10. IMDUR [Concomitant]
  11. ROCALTROL [Concomitant]
  12. COZAAR [Concomitant]
  13. FERRLECIT [FERROUS SUCCINATE] [Concomitant]
  14. SEVELAMER [Concomitant]
  15. OMNISCAN [Suspect]
     Indication: NUCLEAR MAGNETIC RESONANCE IMAGING
     Dosage: 20 ML, ONCE
     Route: 042
     Dates: start: 20021118, end: 20021118
  16. FUROSEMIDE [Concomitant]
  17. COUMADIN [Concomitant]
  18. MAGNEVIST [Suspect]
     Indication: NUCLEAR MAGNETIC RESONANCE IMAGING
     Dosage: 18 ML, ONCE
     Route: 042
     Dates: start: 20021008, end: 20021008
  19. OPTIMARK [Suspect]
     Indication: NUCLEAR MAGNETIC RESONANCE IMAGING
  20. ZEMPLAR [Concomitant]
  21. OMNISCAN [Suspect]
     Dosage: 20 ML, ONCE
     Route: 042
     Dates: start: 20030610, end: 20030610
  22. PROHANCE [Suspect]
     Indication: NUCLEAR MAGNETIC RESONANCE IMAGING
  23. METOPROLOL TARTRATE [Concomitant]

REACTIONS (9)
  - DEPRESSION [None]
  - FIBROSIS [None]
  - NEPHROGENIC SYSTEMIC FIBROSIS [None]
  - JOINT RANGE OF MOTION DECREASED [None]
  - MOBILITY DECREASED [None]
  - EXTREMITY CONTRACTURE [None]
  - SKIN TIGHTNESS [None]
  - SKIN INDURATION [None]
  - SKIN HYPERTROPHY [None]
